FAERS Safety Report 6555622-9 (Version None)
Quarter: 2010Q1

REPORT INFORMATION
  Report Type: 
  Country: None (occurrence: None)
  Receive Date: 20100128
  Receipt Date: 20100125
  Transmission Date: 20100710
  Serious: Yes (Death)
  Sender: FDA-Public Use
  Company Number: FR-BAYER-200937881GPV

PATIENT
  Age: 69 Year
  Sex: Male

DRUGS (3)
  1. SORAFENIB [Suspect]
     Indication: HEPATIC NEOPLASM MALIGNANT
     Dosage: TOTAL DAILY DOSE: 800 MG
     Route: 048
     Dates: start: 20091013, end: 20091101
  2. ERLOTINIB [Suspect]
     Indication: HEPATIC NEOPLASM MALIGNANT
     Dosage: TOTAL DAILY DOSE: 150 MG
     Route: 048
     Dates: start: 20091013, end: 20091101
  3. SINTROM [Concomitant]
     Indication: PULMONARY EMBOLISM
     Dates: start: 20090301

REACTIONS (3)
  - GASTROINTESTINAL HAEMORRHAGE [None]
  - RASH PUSTULAR [None]
  - THROMBOCYTOPENIA [None]
